FAERS Safety Report 4598875-9 (Version None)
Quarter: 2005Q1

REPORT INFORMATION
  Report Type: 
  Country: None (occurrence: None)
  Receive Date: 20050301
  Receipt Date: 20050211
  Transmission Date: 20050727
  Serious: Yes (Hospitalization)
  Sender: FDA-Public Use
  Company Number: DSA_25775_2005

PATIENT
  Sex: Female

DRUGS (2)
  1. CARDIZEM LA [Suspect]
     Dosage: 360 MG Q DAY PO
     Route: 048
     Dates: start: 20050126, end: 20050101
  2. COUMADIN [Suspect]
     Dosage: VAR Q DAY PO
     Route: 048
     Dates: start: 20050101

REACTIONS (4)
  - ASTHENIA [None]
  - HEADACHE [None]
  - PAIN IN EXTREMITY [None]
  - PNEUMONIA [None]
